FAERS Safety Report 16185260 (Version 1)
Quarter: 2019Q2

REPORT INFORMATION
  Report Type: Spontaneous
  Country: US (occurrence: US)
  Receive Date: 20190411
  Receipt Date: 20190411
  Transmission Date: 20190711
  Serious: No
  Sender: FDA-Public Use
  Company Number: US-ABBVIE-19K-163-2731524-00

PATIENT
  Sex: Female
  Weight: 53.12 kg

DRUGS (2)
  1. VENETOCLAX. [Suspect]
     Active Substance: VENETOCLAX
     Indication: CHRONIC MYELOMONOCYTIC LEUKAEMIA
     Dosage: 14 DAYS ON, 14 DAYS OFF
     Route: 048
     Dates: start: 201812
  2. VIDAZA [Concomitant]
     Active Substance: AZACITIDINE
     Indication: CHRONIC MYELOMONOCYTIC LEUKAEMIA
     Dosage: 2 INJECTIONS FOR 5 DAYS EVERY 28 DAYS

REACTIONS (2)
  - Intentional product use issue [Unknown]
  - Pruritus [Not Recovered/Not Resolved]
